FAERS Safety Report 13428964 (Version 1)
Quarter: 2017Q2

REPORT INFORMATION
  Report Type: Spontaneous
  Country: FR (occurrence: FR)
  Receive Date: 20170411
  Receipt Date: 20170411
  Transmission Date: 20170830
  Serious: Yes (Other)
  Sender: FDA-Public Use
  Company Number: FR-ABBVIE-17P-056-1940378-00

PATIENT
  Age: 18 Year
  Sex: Female

DRUGS (1)
  1. DEPAKINE [Suspect]
     Active Substance: VALPROATE SODIUM
     Indication: EPILEPSY
     Route: 048
     Dates: start: 20010701, end: 20081001

REACTIONS (5)
  - Precocious puberty [Recovered/Resolved]
  - Breast malformation [Not Recovered/Not Resolved]
  - Myopathy [Not Recovered/Not Resolved]
  - Tooth malformation [Not Recovered/Not Resolved]
  - Alopecia [Recovered/Resolved]

NARRATIVE: CASE EVENT DATE: 200803
